FAERS Safety Report 9011798 (Version 4)
Quarter: 2013Q1

REPORT INFORMATION
  Report Type: Spontaneous
  Country: US (occurrence: US)
  Receive Date: 20130113
  Receipt Date: 20130123
  Transmission Date: 20140127
  Serious: Yes (Death)
  Sender: FDA-Public Use
  Company Number: PHEH2011US013260

PATIENT
  Age: 65 Year
  Sex: Female

DRUGS (3)
  1. ZOMETA [Suspect]
     Indication: METASTASES TO BONE
     Dosage: 4 MG/5ML PER 4 WEEKS
     Route: 042
     Dates: start: 201001
  2. ZOMETA [Suspect]
     Dosage: 4 MG/5ML PER 4 WEEKS
     Dates: start: 20110620
  3. FEMARA [Concomitant]
     Dosage: UNK UKN, UNK
     Dates: end: 20100224

REACTIONS (2)
  - Breast cancer [Fatal]
  - Malignant neoplasm progression [Fatal]
